FAERS Safety Report 22714897 (Version 3)
Quarter: 2024Q3

REPORT INFORMATION
  Report Type: Report from Study
  Country: US (occurrence: IE)
  Receive Date: 20230718
  Receipt Date: 20240916
  Transmission Date: 20241016
  Serious: Yes (Death, Other)
  Sender: AUROBINDO
  Company Number: US-PFIZER INC-2009242653

PATIENT
  Age: 50 Year
  Sex: Male
  Weight: 60 kg

DRUGS (21)
  1. LORAZEPAM [Suspect]
     Active Substance: LORAZEPAM
     Indication: Prophylaxis
     Dosage: UNK
     Route: 042
     Dates: start: 20090622, end: 20090624
  2. LORAZEPAM [Suspect]
     Active Substance: LORAZEPAM
     Indication: Insomnia
     Dosage: 2 MILLIGRAM, (AT ABOUT 2:00 O^CLOCK AND AT 5:00 O^CLOCK IN THE MORNING)
     Route: 065
     Dates: start: 20090625
  3. DILAUDID [Suspect]
     Active Substance: HYDROMORPHONE HYDROCHLORIDE
     Indication: Product used for unknown indication
     Dosage: UNK
     Route: 065
  4. DIPRIVAN [Suspect]
     Active Substance: ISOPROPYL ALCOHOL\PROPOFOL
     Indication: Insomnia
     Dosage: 50 MILLIGRAM, ONCE A DAY
     Route: 065
     Dates: end: 20090621
  5. DIPRIVAN [Suspect]
     Active Substance: ISOPROPYL ALCOHOL\PROPOFOL
     Dosage: 25 MILLIGRAM, 1 TOTAL
     Route: 065
     Dates: start: 20090622, end: 20090622
  6. DIPRIVAN [Suspect]
     Active Substance: ISOPROPYL ALCOHOL\PROPOFOL
     Dosage: 25 MILLIGRAM, 1 TOTAL
     Route: 042
     Dates: start: 20090624, end: 20090624
  7. DEMEROL [Suspect]
     Active Substance: MEPERIDINE HYDROCHLORIDE
     Indication: Sleep disorder therapy
     Dosage: UNK
     Route: 065
  8. EPHEDRINE SULFATE [Suspect]
     Active Substance: EPHEDRINE SULFATE
     Indication: Product used for unknown indication
     Dosage: UNK
     Route: 065
  9. LIDOCAINE HYDROCHLORIDE [Suspect]
     Active Substance: LIDOCAINE HYDROCHLORIDE
     Indication: Insomnia
     Dosage: UNK
     Route: 042
     Dates: start: 20090624, end: 20090624
  10. VICODIN [Suspect]
     Active Substance: ACETAMINOPHEN\HYDROCODONE BITARTRATE
     Indication: Product used for unknown indication
     Dosage: UNK
     Route: 065
  11. MIDAZOLAM HYDROCHLORIDE [Suspect]
     Active Substance: MIDAZOLAM HYDROCHLORIDE
     Indication: Sleep disorder therapy
     Dosage: UNK
     Route: 065
     Dates: start: 20090622, end: 20090624
  12. MIDAZOLAM HYDROCHLORIDE [Suspect]
     Active Substance: MIDAZOLAM HYDROCHLORIDE
     Indication: Insomnia
     Dosage: UNK
     Route: 065
     Dates: start: 20090625
  13. SOMA [Suspect]
     Active Substance: CARISOPRODOL
     Indication: Muscle relaxant therapy
     Dosage: UNK
     Route: 065
  14. PAXIL [Suspect]
     Active Substance: PAROXETINE HYDROCHLORIDE
     Indication: Depression
     Dosage: UNK
     Route: 065
  15. PRILOSEC [Suspect]
     Active Substance: OMEPRAZOLE MAGNESIUM
     Indication: Gastric ulcer
     Dosage: UNK
     Route: 065
  16. PROPOFOL [Suspect]
     Active Substance: PROPOFOL
     Indication: Anaesthesia
     Dosage: UNK
     Route: 065
  17. PROPOFOL [Suspect]
     Active Substance: PROPOFOL
     Indication: Insomnia
     Dosage: 25 MILLIGRAM, UNK (AT 11:00 O^CLOCK IN THE MORNING)
     Route: 042
     Dates: start: 20090625
  18. VALIUM [Suspect]
     Active Substance: DIAZEPAM
     Indication: Insomnia
     Dosage: 10 MG, UNK
     Route: 048
     Dates: end: 20090625
  19. VISTARIL [Suspect]
     Active Substance: HYDROXYZINE PAMOATE
     Indication: Anxiolytic therapy
     Dosage: UNK
     Route: 065
  20. XANAX [Suspect]
     Active Substance: ALPRAZOLAM
     Indication: Product used for unknown indication
     Dosage: UNK
     Route: 065
  21. ZOLOFT [Suspect]
     Active Substance: SERTRALINE HYDROCHLORIDE
     Indication: Depression
     Dosage: UNK
     Route: 065

REACTIONS (7)
  - Cardiac arrest [Fatal]
  - Respiratory arrest [Fatal]
  - Drug abuse [Fatal]
  - Toxicity to various agents [Fatal]
  - Administration related reaction [Fatal]
  - Off label use [Fatal]
  - Overdose [Fatal]

NARRATIVE: CASE EVENT DATE: 20090101
